FAERS Safety Report 20253243 (Version 1)
Quarter: 2021Q4

REPORT INFORMATION
  Report Type: Spontaneous
  Country: US (occurrence: US)
  Receive Date: 20211229
  Receipt Date: 20211229
  Transmission Date: 20220303
  Serious: No
  Sender: FDA-Public Use
  Company Number: US-SA-SAC20211227000811

PATIENT
  Sex: Female

DRUGS (9)
  1. DUPIXENT [Suspect]
     Active Substance: DUPILUMAB
     Indication: Asthma
     Dosage: 300 MG, QOW
     Route: 058
  2. BREO ELLIPTA [Concomitant]
     Active Substance: FLUTICASONE FUROATE\VILANTEROL TRIFENATATE
     Dosage: BREO ELLIPTA INH 200-25
  3. FLUTICASONE [Concomitant]
     Active Substance: FLUTICASONE
     Dosage: FLUTICASONE SPR
  4. FUROSEMIDE [Concomitant]
     Active Substance: FUROSEMIDE
  5. LOSARTAN POTASSIUM [Concomitant]
     Active Substance: LOSARTAN POTASSIUM
  6. METFORMIN [Concomitant]
     Active Substance: METFORMIN HYDROCHLORIDE
  7. OMEPRAZOLE [Concomitant]
     Active Substance: OMEPRAZOLE
  8. PREDNISONE [Concomitant]
     Active Substance: PREDNISONE
  9. TRAVATAN Z [Concomitant]
     Active Substance: TRAVOPROST
     Dosage: TRAVATAN Z DRO

REACTIONS (3)
  - COVID-19 [Unknown]
  - SARS-CoV-2 test positive [Unknown]
  - Product dose omission issue [Unknown]
